FAERS Safety Report 24722721 (Version 1)
Quarter: 2024Q4

REPORT INFORMATION
  Report Type: Spontaneous
  Country: DE (occurrence: DE)
  Receive Date: 20241211
  Receipt Date: 20241211
  Transmission Date: 20250115
  Serious: Yes (Other)
  Sender: JOHNSON AND JOHNSON
  Company Number: DE-JNJFOC-20241215874

PATIENT
  Age: 72 Year
  Sex: Male

DRUGS (1)
  1. CILTACABTAGENE AUTOLEUCEL [Suspect]
     Active Substance: CILTACABTAGENE AUTOLEUCEL
     Indication: Plasma cell myeloma
     Dates: start: 202311

REACTIONS (6)
  - Peripheral arterial occlusive disease [Unknown]
  - Pneumonia [Unknown]
  - Cytokine release syndrome [Unknown]
  - Renal failure [Unknown]
  - Immune effector cell-associated neurotoxicity syndrome [Unknown]
  - Immune effector cell-associated HLH-like syndrome [Unknown]
